FAERS Safety Report 23191948 (Version 3)
Quarter: 2023Q4

REPORT INFORMATION
  Report Type: Other
  Country: US (occurrence: US)
  Receive Date: 20231116
  Receipt Date: 20231122
  Transmission Date: 20240110
  Serious: No
  Sender: FDA-Public Use
  Company Number: US-TRAVERE-2023TVT00642

PATIENT
  Age: 66 Year
  Sex: Female

DRUGS (7)
  1. FILSPARI [Suspect]
     Active Substance: SPARSENTAN
     Indication: IgA nephropathy
     Dosage: 200 MG
     Route: 048
     Dates: start: 20231022
  2. FILSPARI [Suspect]
     Active Substance: SPARSENTAN
     Indication: Chronic kidney disease
     Dosage: 200 MG
     Route: 048
     Dates: start: 20231022
  3. FILSPARI [Suspect]
     Active Substance: SPARSENTAN
     Dates: start: 20231106
  4. FILSPARI [Suspect]
     Active Substance: SPARSENTAN
     Dates: start: 20231106
  5. MYCOPHENOLIC ACID [Concomitant]
     Active Substance: MYCOPHENOLIC ACID
  6. PNEUMOCOCCAL VACCINE POLYVALENT [Concomitant]
     Active Substance: PNEUMOCOCCAL VACCINE POLYVALENT
  7. PREDNISONE [Concomitant]
     Active Substance: PREDNISONE

REACTIONS (11)
  - Pruritus [Unknown]
  - Abdominal discomfort [Unknown]
  - Blood pressure fluctuation [Unknown]
  - Gastrointestinal infection [Unknown]
  - Headache [Unknown]
  - Injection site induration [Unknown]
  - Migraine [Unknown]
  - Peripheral swelling [Unknown]
  - Pain in extremity [Unknown]
  - Feeling abnormal [Unknown]
  - Furuncle [Unknown]

NARRATIVE: CASE EVENT DATE: 20231022
